FAERS Safety Report 7364219-2 (Version None)
Quarter: 2011Q1

REPORT INFORMATION
  Report Type: 
  Country: None (occurrence: None)
  Receive Date: 20110321
  Receipt Date: 20110310
  Transmission Date: 20110831
  Serious: Yes (Hospitalization)
  Sender: FDA-Public Use
  Company Number: A0744156A

PATIENT
  Age: 60 Year
  Sex: Female
  Weight: 118.2 kg

DRUGS (5)
  1. CARTIA XT [Concomitant]
  2. CAPTOPRIL [Concomitant]
  3. CIPROFLOXACIN [Concomitant]
  4. DILTIAZEM [Concomitant]
  5. AVANDIA [Suspect]
     Indication: DIABETES MELLITUS
     Dosage: 8MG PER DAY
     Route: 048
     Dates: start: 20070123

REACTIONS (1)
  - CEREBROVASCULAR ACCIDENT [None]
